FAERS Safety Report 25077724 (Version 1)
Quarter: 2025Q1

REPORT INFORMATION
  Report Type: Spontaneous
  Country: CN (occurrence: CN)
  Receive Date: 20250314
  Receipt Date: 20250314
  Transmission Date: 20250409
  Serious: Yes (Hospitalization, Other)
  Sender: NOVO NORDISK
  Company Number: None

PATIENT
  Age: 62 Year
  Sex: Male
  Weight: 100 kg

DRUGS (1)
  1. VICTOZA [Suspect]
     Active Substance: LIRAGLUTIDE
     Indication: Type 2 diabetes mellitus
     Dosage: 0.6 MG, QD (IN THE MORNING)
     Route: 058
     Dates: start: 20250227, end: 20250301

REACTIONS (1)
  - Intestinal obstruction [Unknown]

NARRATIVE: CASE EVENT DATE: 20250302
